FAERS Safety Report 12760228 (Version 1)
Quarter: 2016Q3

REPORT INFORMATION
  Report Type: Spontaneous
  Country: GB (occurrence: GB)
  Receive Date: 20160919
  Receipt Date: 20160919
  Transmission Date: 20161109
  Serious: Yes (Other)
  Sender: FDA-Public Use
  Company Number: GB-TEVA-692621ACC

PATIENT
  Age: 81 Year
  Sex: Male
  Weight: 52 kg

DRUGS (18)
  1. CARBOCISTEINE [Concomitant]
     Active Substance: CARBOCYSTEINE
     Dosage: THREE TIMES DAILY.
     Dates: start: 20140605
  2. IPRATROPIUM BROMIDE. [Concomitant]
     Active Substance: IPRATROPIUM BROMIDE
     Dosage: 6 DOSAGE FORMS DAILY;
     Route: 055
     Dates: start: 20150608
  3. PREDNISOLONE. [Concomitant]
     Active Substance: PREDNISOLONE
     Dosage: **RESCUE MEDICATION**
     Dates: start: 20160429
  4. ADCAL [Concomitant]
     Active Substance: CALCIUM CARBONATE
     Dosage: 4 DOSAGE FORMS DAILY;
     Dates: start: 20151002
  5. CODEINE PHOSPHATE [Concomitant]
     Active Substance: CODEINE PHOSPHATE
     Dosage: 3 DOSAGE FORMS DAILY;
     Dates: start: 20160802
  6. LORAZEPAM. [Concomitant]
     Active Substance: LORAZEPAM
     Dates: start: 20160701
  7. PARACETAMOL [Concomitant]
     Active Substance: ACETAMINOPHEN
     Dosage: TAKE 1 OR 2, FOUR TIMES A DAY
     Dates: start: 20160429
  8. VENTOLIN [Concomitant]
     Active Substance: ALBUTEROL SULFATE
     Route: 055
     Dates: start: 20160317
  9. FLUCONAZOLE. [Concomitant]
     Active Substance: FLUCONAZOLE
     Dosage: 1 DOSAGE FORMS DAILY;
     Dates: start: 20160816, end: 20160823
  10. SODIUM CHLORIDE. [Concomitant]
     Active Substance: SODIUM CHLORIDE
     Dosage: USE AS DIRECTED
     Dates: start: 20160811, end: 20160821
  11. CIPROFLOXACIN. [Suspect]
     Active Substance: CIPROFLOXACIN
     Dosage: 1500 MILLIGRAM DAILY;
     Dates: start: 20160830
  12. ALGESAL [Concomitant]
     Active Substance: DIETHYLAMINE SALICYLATE
     Dosage: APPLY
     Dates: start: 20140605
  13. ORAMORPH [Concomitant]
     Active Substance: MORPHINE SULFATE
     Dosage: THREE TIMES A DAY
     Dates: start: 20160718
  14. ALENDRONIC ACID [Concomitant]
     Active Substance: ALENDRONIC ACID
     Dosage: WITH A FULL GLASS OF WATER
     Dates: start: 20151002
  15. SALBUTAMOL [Concomitant]
     Active Substance: ALBUTEROL
     Dosage: 3-4 TIMES/DAY
     Route: 055
     Dates: start: 20160408
  16. AZITHROMYCIN ANHYDROUS. [Concomitant]
     Active Substance: AZITHROMYCIN ANHYDROUS
     Dates: start: 20160219
  17. CO-AMOXICLAV [Concomitant]
     Active Substance: AMOXICILLIN\CLAVULANIC ACID
     Dosage: 3 DOSAGE FORMS DAILY;
     Dates: start: 20150622
  18. FOSTAIR [Concomitant]
     Active Substance: BECLOMETHASONE\FORMOTEROL
     Dosage: 4 DOSAGE FORMS DAILY;
     Dates: start: 20160429

REACTIONS (2)
  - Muscle spasms [Recovered/Resolved]
  - Abdominal discomfort [Recovered/Resolved]

NARRATIVE: CASE EVENT DATE: 20160830
